FAERS Safety Report 12979564 (Version 1)
Quarter: 2016Q4

REPORT INFORMATION
  Report Type: Spontaneous
  Country: US (occurrence: US)
  Receive Date: 20161128
  Receipt Date: 20161128
  Transmission Date: 20170207
  Serious: Yes (Hospitalization, Other)
  Sender: FDA-Public Use
  Company Number: US-WEST-WARD PHARMACEUTICALS CORP.-US-H14001-16-02571

PATIENT
  Age: 59 Year
  Sex: Female

DRUGS (1)
  1. VALPROIC ACID. [Suspect]
     Active Substance: VALPROIC ACID
     Indication: PRODUCT USED FOR UNKNOWN INDICATION
     Route: 065

REACTIONS (9)
  - Leukocytosis [Unknown]
  - Tremor [Recovering/Resolving]
  - Asterixis [Recovering/Resolving]
  - Abdominal tenderness [Unknown]
  - Acute kidney injury [Unknown]
  - Hyperammonaemic encephalopathy [Recovering/Resolving]
  - Toxicity to various agents [Unknown]
  - Somnolence [Recovering/Resolving]
  - Hepatic steatosis [Unknown]
